FAERS Safety Report 7436640-5 (Version None)
Quarter: 2011Q1

REPORT INFORMATION
  Report Type: 
  Country: None (occurrence: None)
  Receive Date: 20110302
  Receipt Date: 20110103
  Transmission Date: 20110831
  Serious: No
  Sender: FDA-Public Use
  Company Number: 022046

PATIENT
  Sex: Female
  Weight: 54.4 kg

DRUGS (4)
  1. METHOTREXATE [Concomitant]
  2. CIMZIA [Suspect]
     Indication: CROHN'S DISEASE
     Dosage: TWO SHOTS MONTHLY SUBCUTANEOUS
     Route: 058
     Dates: start: 20100601
  3. VITAMIN B-12 [Concomitant]
  4. FOLIC ACID [Concomitant]

REACTIONS (5)
  - SINUS DISORDER [None]
  - NASOPHARYNGITIS [None]
  - HYPOPHAGIA [None]
  - OBSTRUCTION [None]
  - MALAISE [None]
